FAERS Safety Report 10228170 (Version 1)
Quarter: 2014Q2

REPORT INFORMATION
  Report Type: Spontaneous
  Country: JP (occurrence: JP)
  Receive Date: 20140610
  Receipt Date: 20140610
  Transmission Date: 20141212
  Serious: Yes (Hospitalization, Other)
  Sender: FDA-Public Use
  Company Number: JP-ACTAVIS-2014-12515

PATIENT
  Age: 2 Year
  Sex: Male

DRUGS (2)
  1. ERYTHROMYCIN (UNKNOWN) [Suspect]
     Indication: RESPIRATORY TRACT INFECTION
     Dosage: 10 MG/KG, DAILY
     Route: 048
  2. ASPIRIN [Concomitant]
     Indication: PRODUCT USED FOR UNKNOWN INDICATION
     Dosage: UNKNOWN
     Route: 065

REACTIONS (1)
  - Clostridium difficile colitis [Recovered/Resolved]
